FAERS Safety Report 10418587 (Version 2)
Quarter: 2014Q3

REPORT INFORMATION
  Report Type: Spontaneous
  Country: AR (occurrence: None)
  Receive Date: 20140827
  Receipt Date: 20140902
  Transmission Date: 20150326
  Serious: Yes (Other)
  Sender: FDA-Public Use
  Company Number: ADR-2014-01514

PATIENT
  Age: 74 Year
  Sex: Female

DRUGS (1)
  1. LIORESAL [Suspect]
     Active Substance: BACLOFEN
     Indication: MULTIPLE SCLEROSIS
     Dosage: ROUTE UNK

REACTIONS (8)
  - Confusional state [None]
  - Joint swelling [None]
  - Condition aggravated [None]
  - Muscle strain [None]
  - Osteoporosis [None]
  - Amyotrophic lateral sclerosis [None]
  - Gait disturbance [None]
  - Scoliosis [None]
